FAERS Safety Report 10828907 (Version 1)
Quarter: 2015Q1

REPORT INFORMATION
  Report Type: Spontaneous
  Country: PR (occurrence: PR)
  Receive Date: 20150219
  Receipt Date: 20150219
  Transmission Date: 20150721
  Serious: No
  Sender: FDA-Public Use
  Company Number: PR-ABBVIE-14P-131-1224113-00

PATIENT
  Sex: Female
  Weight: 87.62 kg

DRUGS (11)
  1. METHOTREXATE [Concomitant]
     Active Substance: METHOTREXATE
     Indication: RHEUMATOID ARTHRITIS
     Dosage: 2 PILLS FRIDAY, 2 PILLS SATURDAY
     Route: 048
  2. CALTRATE WITH VITAMIN D [Concomitant]
     Active Substance: CALCIUM CARBONATE\VITAMIN D
     Indication: PRODUCT USED FOR UNKNOWN INDICATION
  3. HUMIRA [Suspect]
     Active Substance: ADALIMUMAB
     Indication: RHEUMATOID ARTHRITIS
     Route: 058
     Dates: start: 201106
  4. SYNTHROID [Concomitant]
     Active Substance: LEVOTHYROXINE SODIUM
     Indication: PRODUCT USED FOR UNKNOWN INDICATION
  5. CARAFATE [Concomitant]
     Active Substance: SUCRALFATE
     Indication: GASTROOESOPHAGEAL REFLUX DISEASE
  6. TRAMADOL [Concomitant]
     Active Substance: TRAMADOL
     Indication: PAIN
  7. FOLIC ACID. [Concomitant]
     Active Substance: FOLIC ACID
     Indication: PRODUCT USED FOR UNKNOWN INDICATION
  8. PLAQUENIL [Concomitant]
     Active Substance: HYDROXYCHLOROQUINE SULFATE
     Indication: PRODUCT USED FOR UNKNOWN INDICATION
  9. BENTYL [Concomitant]
     Active Substance: DICYCLOMINE HYDROCHLORIDE
     Indication: PRODUCT USED FOR UNKNOWN INDICATION
     Dosage: IN MORNING
  10. VENTIL [Concomitant]
     Indication: PRODUCT USED FOR UNKNOWN INDICATION
  11. UNKNOWN LUBRICANT DROPS [Concomitant]
     Indication: EYE DISORDER
     Route: 047

REACTIONS (8)
  - Wound [Recovering/Resolving]
  - Articular calcification [Unknown]
  - Visual impairment [Recovering/Resolving]
  - Mobility decreased [Unknown]
  - Contusion [Unknown]
  - Haematochezia [Unknown]
  - Fall [Unknown]
  - Exostosis [Unknown]
